FAERS Safety Report 13418505 (Version 3)
Quarter: 2017Q2

REPORT INFORMATION
  Report Type: Report from Study
  Country: US (occurrence: US)
  Receive Date: 20170406
  Receipt Date: 20170518
  Transmission Date: 20170830
  Serious: Yes (Hospitalization)
  Sender: FDA-Public Use
  Company Number: US-ACTELION-A-US2016-143409

PATIENT
  Age: 83 Year
  Sex: Female
  Weight: 61.22 kg

DRUGS (12)
  1. UPTRAVI [Suspect]
     Active Substance: SELEXIPAG
     Indication: PULMONARY HYPERTENSION
     Dosage: 600 MCG, BID
     Route: 048
     Dates: end: 201701
  2. UPTRAVI [Suspect]
     Active Substance: SELEXIPAG
     Dosage: 400 MCG, BID
     Route: 048
  3. ALDACTONE [Concomitant]
     Active Substance: SPIRONOLACTONE
     Dosage: 50 MG, QD
  4. UPTRAVI [Suspect]
     Active Substance: SELEXIPAG
     Dosage: 200 MCG, BID
     Route: 048
     Dates: start: 20160831
  5. ELIQUIS [Concomitant]
     Active Substance: APIXABAN
  6. DILTIAZEM. [Concomitant]
     Active Substance: DILTIAZEM
     Dosage: 60 MG, QD
  7. TRACLEER [Suspect]
     Active Substance: BOSENTAN
     Indication: PULMONARY HYPERTENSION
     Dosage: 125 MG, BID
     Route: 048
     Dates: start: 20150123
  8. DIGOXIN. [Concomitant]
     Active Substance: DIGOXIN
     Dosage: 0.125 MG, QD
  9. UPTRAVI [Suspect]
     Active Substance: SELEXIPAG
     Dosage: 800 MCG, BID
     Route: 048
  10. LASIX [Concomitant]
     Active Substance: FUROSEMIDE
     Dosage: 40 MG, QD
  11. REVATIO [Concomitant]
     Active Substance: SILDENAFIL CITRATE
     Dosage: 80 MG, TID
  12. UPTRAVI [Suspect]
     Active Substance: SELEXIPAG
     Dosage: 1000 MCG, BID
     Route: 048
     Dates: start: 20160902

REACTIONS (25)
  - Dyspnoea exertional [Unknown]
  - Neck pain [Recovered/Resolved]
  - Blood alkaline phosphatase increased [Unknown]
  - Pyuria [Unknown]
  - Therapy non-responder [Unknown]
  - Liver function test increased [Unknown]
  - Aspartate aminotransferase increased [Unknown]
  - Brain natriuretic peptide increased [Recovering/Resolving]
  - Cough [Unknown]
  - Pneumonia [Unknown]
  - Heart rate increased [Unknown]
  - Pruritus [Unknown]
  - Mastication disorder [Unknown]
  - Chest pain [Unknown]
  - Alanine aminotransferase increased [Unknown]
  - Dyspnoea [Recovering/Resolving]
  - Cardiac failure congestive [Recovering/Resolving]
  - Facial pain [Unknown]
  - Headache [Recovered/Resolved]
  - Myalgia [Not Recovered/Not Resolved]
  - Blood bilirubin increased [Unknown]
  - Atrial fibrillation [Unknown]
  - Pain in jaw [Not Recovered/Not Resolved]
  - Diarrhoea [Recovered/Resolved]
  - Oedema [Recovering/Resolving]

NARRATIVE: CASE EVENT DATE: 20161021
